FAERS Safety Report 6963501-8 (Version None)
Quarter: 2010Q3

REPORT INFORMATION
  Report Type: 
  Country: None (occurrence: None)
  Receive Date: 20100902
  Receipt Date: 20100825
  Transmission Date: 20110219
  Serious: Yes (Hospitalization)
  Sender: FDA-Public Use
  Company Number: US-US-EMD SERONO, INC.-7015779

PATIENT
  Sex: Female

DRUGS (2)
  1. REBIF [Suspect]
     Indication: MULTIPLE SCLEROSIS
     Route: 058
     Dates: start: 20060701, end: 20100501
  2. REBIF [Suspect]
     Route: 058
     Dates: start: 20100601

REACTIONS (7)
  - ASTHMA [None]
  - BLOOD MAGNESIUM DECREASED [None]
  - HOT FLUSH [None]
  - INJECTION SITE PAIN [None]
  - MENOPAUSE [None]
  - MENSTRUATION IRREGULAR [None]
  - PNEUMONIA [None]
